FAERS Safety Report 12571084 (Version 1)
Quarter: 2016Q3

REPORT INFORMATION
  Report Type: Spontaneous
  Country: US (occurrence: US)
  Receive Date: 20160719
  Receipt Date: 20160719
  Transmission Date: 20161109
  Serious: Yes (Disabling, Other)
  Sender: FDA-Public Use
  Company Number: US-BAYER-2016-138031

PATIENT
  Age: 28 Year
  Sex: Female

DRUGS (5)
  1. CIPRO [Suspect]
     Active Substance: CIPROFLOXACIN HYDROCHLORIDE
     Indication: URINARY TRACT INFECTION
     Dosage: 5 PILLS
     Dates: start: 2015
  2. PREDNISONE. [Suspect]
     Active Substance: PREDNISONE
     Dosage: UNK
  3. PLAQUENIL [Suspect]
     Active Substance: HYDROXYCHLOROQUINE SULFATE
     Dosage: UNK
  4. LEVAQUIN [Suspect]
     Active Substance: LEVOFLOXACIN
     Dosage: UNK
  5. METHOTREXATE. [Suspect]
     Active Substance: METHOTREXATE
     Dosage: UNK

REACTIONS (23)
  - Muscular weakness [None]
  - Photophobia [None]
  - Dysgeusia [None]
  - Nervousness [None]
  - Muscle twitching [None]
  - Thirst [None]
  - Neurotoxicity [None]
  - Ear pain [None]
  - Parosmia [None]
  - Gait disturbance [None]
  - Weight bearing difficulty [None]
  - Mitochondrial toxicity [None]
  - Palpitations [None]
  - Nervous system disorder [None]
  - Pain in extremity [None]
  - Abasia [None]
  - Insomnia [None]
  - Retinal disorder [None]
  - Limb discomfort [None]
  - Hyperacusis [None]
  - Myalgia [None]
  - Bedridden [None]
  - Hypergeusia [None]
